FAERS Safety Report 9304073 (Version 1)
Quarter: 2013Q1

REPORT INFORMATION
  Report Type: Spontaneous
  Country: GB (occurrence: None)
  Receive Date: 20130129
  Receipt Date: 20130129
  Transmission Date: 20140127
  Serious: No
  Sender: FDA-Public Use
  Company Number: 2006US-04916

PATIENT
  Age: 74 Year
  Sex: Female

DRUGS (10)
  1. FENTANYL (FENTANYL) TRANSDERMAL PATCH 25MCG/HR [Suspect]
     Indication: NECK PAIN
     Dosage: 25MCG/HR, TRANSDERMAL
     Route: 062
  2. FENTANYL (FENTANYL) [Suspect]
     Indication: NECK PAIN
     Dosage: 12MCG/HR, UNKNOWN
  3. LANSOPRAZOLE (LANSOPRAZOLE) [Concomitant]
  4. HALOPERIDOL (HALOPERIDOL) [Concomitant]
  5. TEMAZEPAM [Concomitant]
  6. FUROSEMIDE [Concomitant]
  7. RILUZOLE [Concomitant]
  8. CITALOPRAM [Concomitant]
  9. ACETAMINOPHEN (PARACETAMOL) [Concomitant]
  10. HALOPERIDOL [Concomitant]

REACTIONS (1)
  - Dyspnoea [None]
